FAERS Safety Report 13088418 (Version 1)
Quarter: 2017Q1

REPORT INFORMATION
  Report Type: Spontaneous
  Country: US (occurrence: US)
  Receive Date: 20170104
  Receipt Date: 20170104
  Transmission Date: 20170428
  Serious: Yes (Other)
  Sender: FDA-Public Use
  Company Number: None

PATIENT
  Age: 37 Year
  Sex: Male
  Weight: 71.1 kg

DRUGS (1)
  1. BUNAVAIL [Suspect]
     Active Substance: BUPRENORPHINE HYDROCHLORIDE\NALOXONE HYDROCHLORIDE DIHYDRATE
     Indication: DEPENDENCE
     Dosage: 1 BUCCAL FILMS TWICE A DAY TAKEN IN CHEEK
     Dates: start: 20151201, end: 20170104

REACTIONS (5)
  - Product substitution issue [None]
  - Economic problem [None]
  - Depression [None]
  - Insomnia [None]
  - Anger [None]

NARRATIVE: CASE EVENT DATE: 20151201
